FAERS Safety Report 17166131 (Version 2)
Quarter: 2020Q1

REPORT INFORMATION
  Report Type: Report from Study
  Country: US (occurrence: US)
  Receive Date: 20191217
  Receipt Date: 20200115
  Transmission Date: 20200409
  Serious: No
  Sender: FDA-Public Use
  Company Number: US-SA-2019SA346393

PATIENT
  Age: 59 Year
  Sex: Male

DRUGS (4)
  1. PRIVIGEN [Concomitant]
     Active Substance: HUMAN IMMUNOGLOBULIN G
     Dosage: UNK
     Dates: start: 20191220
  2. DUPILUMAB [Suspect]
     Active Substance: DUPILUMAB
     Dosage: 200 MG, QOW
     Route: 058
     Dates: start: 20191221
  3. TRULICITY [Concomitant]
     Active Substance: DULAGLUTIDE
     Dosage: UNK
     Dates: start: 20191221
  4. DUPILUMAB [Suspect]
     Active Substance: DUPILUMAB
     Indication: ASTHMA
     Dosage: 400 MG, 1X
     Route: 058
     Dates: start: 20191207, end: 20191207

REACTIONS (11)
  - Photophobia [Recovered/Resolved]
  - Hyperhidrosis [Recovering/Resolving]
  - Injection site erythema [Recovered/Resolved]
  - Injection site pain [Recovered/Resolved]
  - Fatigue [Recovering/Resolving]
  - Erythema [Recovering/Resolving]
  - Hypotension [Recovered/Resolved]
  - Presyncope [Recovered/Resolved]
  - Eye pruritus [Recovering/Resolving]
  - Miosis [Recovering/Resolving]
  - Blood pressure fluctuation [Recovering/Resolving]

NARRATIVE: CASE EVENT DATE: 201912
